FAERS Safety Report 6735569-5 (Version None)
Quarter: 2010Q2

REPORT INFORMATION
  Report Type: 
  Country: None (occurrence: None)
  Receive Date: 20100521
  Receipt Date: 20100510
  Transmission Date: 20101027
  Serious: Yes (Hospitalization, Other)
  Sender: FDA-Public Use
  Company Number: DK-JNJFOC-20100402293

PATIENT
  Sex: Male
  Weight: 87.7 kg

DRUGS (6)
  1. REMICADE [Suspect]
     Indication: COLITIS ULCERATIVE
     Route: 042
  2. AZATHIOPRINE [Concomitant]
     Indication: COLITIS ULCERATIVE
     Route: 048
  3. PREDNISOLONE [Concomitant]
     Indication: COLITIS ULCERATIVE
     Route: 048
  4. MESALAZINE [Concomitant]
     Indication: COLITIS ULCERATIVE
     Route: 048
  5. UNIKALK BASIC [Concomitant]
     Indication: COLITIS ULCERATIVE
     Route: 048
  6. ADALIMUMAB [Concomitant]
     Indication: COLITIS ULCERATIVE
     Route: 058

REACTIONS (3)
  - COLECTOMY [None]
  - COLITIS ULCERATIVE [None]
  - PYREXIA [None]
